FAERS Safety Report 4867463-9 (Version None)
Quarter: 2005Q4

REPORT INFORMATION
  Report Type: 
  Country: None (occurrence: None)
  Receive Date: 20051228
  Receipt Date: 20051220
  Transmission Date: 20060501
  Serious: Yes (Hospitalization)
  Sender: FDA-Public Use
  Company Number: 2005UW19082

PATIENT
  Age: 85 Year
  Sex: Male

DRUGS (1)
  1. LOSEC [Suspect]
     Route: 048
     Dates: start: 19990101

REACTIONS (3)
  - DIARRHOEA [None]
  - GASTROINTESTINAL DISORDER [None]
  - INGUINAL HERNIA [None]
